FAERS Safety Report 14525789 (Version 1)
Quarter: 2018Q1

REPORT INFORMATION
  Report Type: Report from Study
  Country: None (occurrence: BR)
  Receive Date: 20180213
  Receipt Date: 20180213
  Transmission Date: 20180509
  Serious: Yes (Hospitalization)
  Sender: FDA-Public Use
  Company Number: BR-ABBVIE-18K-020-2253006-00

PATIENT
  Sex: Male
  Weight: 89 kg

DRUGS (3)
  1. HUMIRA [Suspect]
     Active Substance: ADALIMUMAB
     Indication: ANKYLOSING SPONDYLITIS
     Route: 058
     Dates: start: 20150916, end: 201710
  2. CELEBRA [Concomitant]
     Active Substance: CELECOXIB
     Indication: PAIN
  3. NOVALGINA [Concomitant]
     Active Substance: METAMIZOLE SODIUM
     Indication: PAIN

REACTIONS (5)
  - Blood pressure fluctuation [Recovering/Resolving]
  - Arthritis [Not Recovered/Not Resolved]
  - Hormone level abnormal [Recovering/Resolving]
  - Heart rate increased [Not Recovered/Not Resolved]
  - Thyroid mass [Recovered/Resolved]

NARRATIVE: CASE EVENT DATE: 2017
